FAERS Safety Report 11148587 (Version 1)
Quarter: 2015Q2

REPORT INFORMATION
  Report Type: Other
  Country: GB (occurrence: GB)
  Receive Date: 20150529
  Receipt Date: 20150529
  Transmission Date: 20150821
  Serious: Yes (Life-Threatening)
  Sender: FDA-Public Use
  Company Number: GB-MYLANLABS-2015M1016544

PATIENT

DRUGS (3)
  1. XELODA [Suspect]
     Active Substance: CAPECITABINE
     Indication: GASTRIC CANCER
     Dosage: TREATMENT STOPPED, LAST DOSE PRIOR TO SAE 30 APRIL 2010,FREQUENCY NOT REPORTED,CYCLE 5
     Route: 048
  2. EPIRUBICIN [Suspect]
     Active Substance: EPIRUBICIN
     Indication: GASTRIC CANCER
     Dosage: LAST DOSE PRIOR TO SAE 30 APRIL 2010,FREQUENCY NOT REPORTED,CYCLE 5
     Route: 042
     Dates: start: 20091002
  3. CISPLATIN. [Suspect]
     Active Substance: CISPLATIN
     Indication: GASTRIC CANCER
     Dosage: TREATMENT STOPPED, LAST DOSE PRIOR TO SAE 30 APRIL 2010,FREQUENCY NOT REPORTED,CYCLE5
     Route: 042
     Dates: start: 20091002

REACTIONS (1)
  - Chest pain [Recovered/Resolved]

NARRATIVE: CASE EVENT DATE: 20100421
